FAERS Safety Report 4284816-0 (Version None)
Quarter: 2004Q1

REPORT INFORMATION
  Report Type: 
  Country: None (occurrence: None)
  Receive Date: 20040204
  Receipt Date: 20031021
  Transmission Date: 20041129
  Serious: Yes (Other)
  Sender: FDA-Public Use
  Company Number: US-BRISTOL-MYERS SQUIBB COMPANY-12416814

PATIENT
  Age: 9 Year
  Sex: Male

DRUGS (1)
  1. AZACTAM [Suspect]

REACTIONS (1)
  - THROMBOCYTHAEMIA [None]
